FAERS Safety Report 8120174-9 (Version None)
Quarter: 2012Q1

REPORT INFORMATION
  Report Type: 
  Country: None (occurrence: None)
  Receive Date: 20120203
  Receipt Date: 20120126
  Transmission Date: 20120608
  Serious: Yes (Other)
  Sender: FDA-Public Use
  Company Number: AUR-APL-2012-00672

PATIENT
  Sex: Female

DRUGS (1)
  1. ALENDRONIC ACID (ALENDRONIC ACID) [Suspect]
     Indication: PRODUCT USED FOR UNKNOWN INDICATION
     Dosage: 0.1429 DOSAGE FORMS (1 DOSAGE FORMS, 1 IN 1 WK),ORAL
     Route: 048
     Dates: start: 20120121, end: 20120124

REACTIONS (3)
  - ALOPECIA [None]
  - MYALGIA [None]
  - MUSCULOSKELETAL DISCOMFORT [None]
